FAERS Safety Report 21033251 (Version 1)
Quarter: 2022Q2

REPORT INFORMATION
  Report Type: Spontaneous
  Country: US (occurrence: None)
  Receive Date: 20220630
  Receipt Date: 20220630
  Transmission Date: 20220720
  Serious: Yes (Hospitalization)
  Sender: FDA-Public Use
  Company Number: None

PATIENT
  Age: 59 Year
  Sex: Male
  Weight: 104.5 kg

DRUGS (4)
  1. PAXLOVID [Suspect]
     Active Substance: NIRMATRELVIR\RITONAVIR
     Indication: COVID-19
     Dosage: FREQUENCY : TWICE A DAY;?
     Route: 048
     Dates: start: 20220621, end: 20220626
  2. exenatide SQ 2mg/0.85mL [Concomitant]
  3. ATORVASTATIN [Concomitant]
     Active Substance: ATORVASTATIN
  4. METFORMIN [Concomitant]
     Active Substance: METFORMIN HYDROCHLORIDE

REACTIONS (12)
  - COVID-19 [None]
  - Hyperhidrosis [None]
  - Fatigue [None]
  - Cough [None]
  - Respiratory tract congestion [None]
  - Myalgia [None]
  - Arthralgia [None]
  - Ageusia [None]
  - Nausea [None]
  - Retching [None]
  - Pyrexia [None]
  - Tachypnoea [None]
